FAERS Safety Report 5847031-2 (Version None)
Quarter: 2008Q3

REPORT INFORMATION
  Report Type: 
  Country: None (occurrence: None)
  Receive Date: 20080815
  Receipt Date: 20080804
  Transmission Date: 20090109
  Serious: Yes (Hospitalization, Other)
  Sender: FDA-Public Use
  Company Number: US-PFIZER INC-2008065771

PATIENT
  Sex: Female
  Weight: 72.727 kg

DRUGS (4)
  1. CHANTIX [Suspect]
     Indication: SMOKING CESSATION THERAPY
     Dates: start: 20080701, end: 20080730
  2. ANTIHYPERTENSIVES [Concomitant]
  3. VITAMIN TAB [Concomitant]
  4. ACETYLSALICYLIC ACID SRT [Concomitant]

REACTIONS (8)
  - BALANCE DISORDER [None]
  - EYE PRURITUS [None]
  - FEELING ABNORMAL [None]
  - HEADACHE [None]
  - MOBILITY DECREASED [None]
  - PARKINSON'S DISEASE [None]
  - THERAPEUTIC PROCEDURE [None]
  - TREMOR [None]
